FAERS Safety Report 5166153-5 (Version None)
Quarter: 2006Q4

REPORT INFORMATION
  Report Type: 
  Country: None (occurrence: None)
  Receive Date: 20061129
  Receipt Date: 20061120
  Transmission Date: 20070319
  Serious: Yes (Other)
  Sender: FDA-Public Use
  Company Number: 2006144191

PATIENT
  Age: 34 Year
  Sex: Female
  Weight: 46.7205 kg

DRUGS (5)
  1. CHANTIX [Suspect]
     Dosage: 0.5 MG (0.5 MG, 1 IN 1 D)
     Dates: start: 20061101
  2. LACTULOSE [Concomitant]
  3. CITRUCEL (METHYLCELLULOSE) [Concomitant]
  4. NEXIUM [Concomitant]
  5. PRENATAL VITAMINS (ASCORBIC ACID, BIOTIN, MINERALS NOS, NICOTINIC ACID [Concomitant]

REACTIONS (8)
  - ABDOMINAL PAIN UPPER [None]
  - AGEUSIA [None]
  - ANOSMIA [None]
  - CONSTIPATION [None]
  - DIZZINESS [None]
  - DRUG INEFFECTIVE [None]
  - IRRITABILITY [None]
  - NAUSEA [None]
